FAERS Safety Report 6449227-8 (Version None)
Quarter: 2009Q4

REPORT INFORMATION
  Report Type: 
  Country: None (occurrence: None)
  Receive Date: 20091120
  Receipt Date: 20091109
  Transmission Date: 20100525
  Serious: Yes (Hospitalization)
  Sender: FDA-Public Use
  Company Number: DE-PFIZER INC-2006055385

PATIENT
  Age: 50 Year
  Sex: Male
  Weight: 83.5 kg

DRUGS (6)
  1. SUNITINIB MALATE [Suspect]
     Indication: METASTATIC RENAL CELL CARCINOMA
     Dosage: 50 MG, DAILY
     Route: 048
     Dates: start: 20060116, end: 20060326
  2. NOVONORM [Concomitant]
     Route: 048
     Dates: start: 19920101
  3. SIMVASTATIN [Concomitant]
     Dates: start: 20000101, end: 20060825
  4. RIOPAN [Concomitant]
     Dates: start: 20060317, end: 20060324
  5. PANTOZOL [Concomitant]
     Dates: start: 20060324
  6. TORASEMIDE [Concomitant]
     Dates: start: 20060402, end: 20060402

REACTIONS (4)
  - DYSPNOEA [None]
  - PLEURAL EFFUSION [None]
  - SYNCOPE [None]
  - VERTIGO [None]
